FAERS Safety Report 16210222 (Version 1)
Quarter: 2019Q2

REPORT INFORMATION
  Report Type: Spontaneous
  Country: US (occurrence: US)
  Receive Date: 20190418
  Receipt Date: 20190418
  Transmission Date: 20190711
  Serious: Yes (Disabling, Other)
  Sender: FDA-Public Use
  Company Number: US-AUROBINDO-AUR-APL-2019-020071

PATIENT

DRUGS (1)
  1. DEXAMETHASONE INJECTION [Suspect]
     Active Substance: DEXAMETHASONE
     Indication: SCIATICA
     Dosage: 10 MILLIGRAM, TRANSFORAMINAL INJECTION
     Route: 008

REACTIONS (3)
  - Chorioretinopathy [Unknown]
  - Serous retinal detachment [Unknown]
  - Blindness [Not Recovered/Not Resolved]
